FAERS Safety Report 6014576-4 (Version None)
Quarter: 2008Q4

REPORT INFORMATION
  Report Type: 
  Country: None (occurrence: None)
  Receive Date: 20081219
  Receipt Date: 20080908
  Transmission Date: 20090506
  Serious: No
  Sender: FDA-Public Use
  Company Number: A0744713A

PATIENT
  Age: 88 Year
  Sex: Male
  Weight: 67.7 kg

DRUGS (9)
  1. AVODART [Suspect]
     Dosage: .5MG SINGLE DOSE
     Route: 048
     Dates: start: 20080825
  2. TOPROL-XL [Concomitant]
     Route: 048
     Dates: start: 20020101
  3. IMDUR [Concomitant]
     Route: 048
     Dates: start: 20030101
  4. NORVASC [Concomitant]
     Route: 048
     Dates: start: 20040101
  5. LASIX [Concomitant]
     Route: 048
     Dates: start: 20050101
  6. LOVASTATIN [Concomitant]
     Route: 048
     Dates: start: 20040101
  7. ASPIRIN [Concomitant]
     Route: 048
     Dates: start: 20030101
  8. VITAMIN [Concomitant]
     Dates: start: 20030101
  9. PLAVIX [Concomitant]
     Dates: start: 20010101

REACTIONS (1)
  - FATIGUE [None]
